FAERS Safety Report 8983759 (Version 1)
Quarter: 2012Q4

REPORT INFORMATION
  Report Type: 
  Country: CH (occurrence: CH)
  Receive Date: 20121224
  Receipt Date: 20121224
  Transmission Date: 20130627
  Serious: Yes (Hospitalization)
  Sender: FDA-Public Use
  Company Number: CH-ROCHE-1168226

PATIENT
  Age: 67 Year
  Sex: Female

DRUGS (17)
  1. CELLCEPT [Suspect]
     Indication: PRODUCT USED FOR UNKNOWN INDICATION
     Route: 065
     Dates: start: 20080924
  2. CELLCEPT [Suspect]
     Route: 065
     Dates: start: 201002
  3. MABTHERA [Suspect]
     Indication: PRODUCT USED FOR UNKNOWN INDICATION
     Route: 042
     Dates: start: 20071219
  4. MABTHERA [Suspect]
     Dosage: for 3 cycles
     Route: 042
     Dates: end: 20081230
  5. MABTHERA [Suspect]
     Route: 042
     Dates: start: 20071227
  6. MABTHERA [Suspect]
     Route: 042
     Dates: start: 20080103
  7. MABTHERA [Suspect]
     Route: 042
     Dates: start: 20080111
  8. MABTHERA [Suspect]
     Route: 042
     Dates: start: 20080221
  9. MABTHERA [Suspect]
     Route: 042
     Dates: start: 20080421
  10. PREDNISONE [Suspect]
     Indication: PRODUCT USED FOR UNKNOWN INDICATION
     Dosage: 5-12.5 mg/day
     Route: 065
  11. ASPIRIN CARDIO [Concomitant]
     Route: 065
  12. EZETROL [Concomitant]
     Route: 065
  13. TORASIS [Concomitant]
     Route: 065
     Dates: end: 201002
  14. FLUDEX [Concomitant]
     Route: 065
     Dates: start: 201001
  15. CALCIMAGON-D3 [Concomitant]
     Route: 065
  16. SPIRIVA [Concomitant]
     Route: 065
     Dates: start: 200810
  17. SERETIDE DISKUS [Concomitant]
     Route: 065
     Dates: start: 200810

REACTIONS (5)
  - Bronchopneumonia [Recovered/Resolved]
  - Bronchiectasis [Recovered/Resolved]
  - Bronchopneumonia [Recovered/Resolved]
  - Bronchiectasis [Recovered/Resolved]
  - Bronchiectasis [Recovered/Resolved]
